FAERS Safety Report 4659932-1 (Version None)
Quarter: 2005Q2

REPORT INFORMATION
  Report Type: 
  Country: None (occurrence: None)
  Receive Date: 20050512
  Receipt Date: 20050426
  Transmission Date: 20051028
  Serious: Yes (Other)
  Sender: FDA-Public Use
  Company Number: PHBS2005JP05974

PATIENT
  Age: 36 Year
  Sex: Male

DRUGS (4)
  1. PL GRAN. [Concomitant]
     Dosage: 3 G/DAY
  2. DICLOFENAC SODIUM [Suspect]
     Indication: HEADACHE
     Dosage: 50 MG/DAY
     Route: 054
     Dates: start: 20010126
  3. IBUPROFEN [Suspect]
     Indication: PYREXIA
     Route: 048
     Dates: start: 20010124
  4. LEVOFLOXACIN [Concomitant]
     Indication: PYREXIA
     Dosage: 300 MG/DAY
     Route: 048
     Dates: start: 20010124

REACTIONS (15)
  - AGGRESSION [None]
  - CSF CELL COUNT INCREASED [None]
  - CSF GLUCOSE DECREASED [None]
  - CSF MONOCYTE COUNT DECREASED [None]
  - CSF PRESSURE INCREASED [None]
  - CSF PROTEIN INCREASED [None]
  - ENCEPHALOPATHY [None]
  - EOSINOPHIL COUNT INCREASED [None]
  - ERYTHEMA [None]
  - HEPATIC FUNCTION ABNORMAL [None]
  - MENINGITIS ASEPTIC [None]
  - MENINGITIS BACTERIAL [None]
  - RASH [None]
  - RESTLESSNESS [None]
  - SOMNOLENCE [None]
